FAERS Safety Report 15076485 (Version 1)
Quarter: 2018Q2

REPORT INFORMATION
  Report Type: Spontaneous
  Country: TW (occurrence: TW)
  Receive Date: 20180627
  Receipt Date: 20180627
  Transmission Date: 20180711
  Serious: Yes (Other)
  Sender: FDA-Public Use
  Company Number: TW-BAYER-2018-109387

PATIENT
  Age: 81 Year
  Sex: Female

DRUGS (2)
  1. NEXAVAR [Suspect]
     Active Substance: SORAFENIB
     Indication: FOLLICULAR THYROID CANCER
     Dosage: 400 MG, DAILY
     Dates: start: 201704
  2. NEXAVAR [Suspect]
     Active Substance: SORAFENIB
     Indication: FOLLICULAR THYROID CANCER
     Dosage: 200 MG, QD FOR FOUR MONTHS

REACTIONS (4)
  - Diarrhoea [None]
  - Pulmonary embolism [None]
  - Palmar-plantar erythrodysaesthesia syndrome [None]
  - Dyspnoea [None]

NARRATIVE: CASE EVENT DATE: 201709
